FAERS Safety Report 6653153-9 (Version None)
Quarter: 2010Q1

REPORT INFORMATION
  Report Type: 
  Country: None (occurrence: None)
  Receive Date: 20100326
  Receipt Date: 20100322
  Transmission Date: 20100710
  Serious: Yes (Hospitalization)
  Sender: FDA-Public Use
  Company Number: CHPA2010US05541

PATIENT
  Sex: Female

DRUGS (2)
  1. VOLTAREN [Suspect]
     Indication: ARTHRITIS
     Dosage: UNK, UNK
     Route: 061
     Dates: start: 20090101, end: 20090101
  2. WARFARIN SODIUM [Concomitant]
     Dosage: UNK
     Dates: start: 20080801, end: 20100208

REACTIONS (3)
  - BRAIN NEOPLASM [None]
  - BRAIN TUMOUR OPERATION [None]
  - DRUG ADMINISTERED AT INAPPROPRIATE SITE [None]
